FAERS Safety Report 20166135 (Version 3)
Quarter: 2022Q1

REPORT INFORMATION
  Report Type: Spontaneous
  Country: US (occurrence: None)
  Receive Date: 20211209
  Receipt Date: 20220208
  Transmission Date: 20220423
  Serious: No
  Sender: FDA-Public Use
  Company Number: 2021A824905

PATIENT
  Age: 922 Month
  Sex: Female
  Weight: 81.6 kg

DRUGS (4)
  1. BUDESONIDE\FORMOTEROL\GLYCOPYRRONIUM [Suspect]
     Active Substance: BUDESONIDE\FORMOTEROL\GLYCOPYRRONIUM
     Indication: Chronic obstructive pulmonary disease
     Dosage: 160/7.2/5.0MCG, 2 PUFFS TWICE A DAY
     Route: 055
     Dates: start: 202106
  2. PREDNISONE [Concomitant]
     Active Substance: PREDNISONE
  3. ALBUTEROL [Concomitant]
     Active Substance: ALBUTEROL
  4. OXYGEN [Concomitant]
     Active Substance: OXYGEN

REACTIONS (4)
  - Dyspnoea [Not Recovered/Not Resolved]
  - Weight increased [Unknown]
  - Wrong technique in device usage process [Unknown]
  - Device malfunction [Unknown]

NARRATIVE: CASE EVENT DATE: 20210101
